FAERS Safety Report 18701938 (Version 1)
Quarter: 2021Q1

REPORT INFORMATION
  Report Type: Spontaneous
  Country: US (occurrence: US)
  Receive Date: 20210105
  Receipt Date: 20210105
  Transmission Date: 20210419
  Serious: Yes (Hospitalization)
  Sender: FDA-Public Use
  Company Number: US-MYLANLABS-2021M1000123

PATIENT
  Age: 27 Year
  Sex: Female

DRUGS (1)
  1. TRAMADOL. [Suspect]
     Active Substance: TRAMADOL
     Indication: DRUG USE DISORDER
     Route: 065

REACTIONS (6)
  - Seizure [Recovering/Resolving]
  - Hypoglycaemia [Unknown]
  - Tachycardia [Unknown]
  - Clonus [Not Recovered/Not Resolved]
  - Depressed level of consciousness [Recovering/Resolving]
  - Hyperreflexia [Not Recovered/Not Resolved]
